FAERS Safety Report 6209130-5 (Version None)
Quarter: 2009Q2

REPORT INFORMATION
  Report Type: 
  Country: None (occurrence: None)
  Receive Date: 20090529
  Receipt Date: 20090521
  Transmission Date: 20091009
  Serious: Yes (Other)
  Sender: FDA-Public Use
  Company Number: US-GILEAD-2009-0022117

PATIENT
  Sex: Female

DRUGS (9)
  1. LETAIRIS [Suspect]
     Indication: PULMONARY ARTERIAL HYPERTENSION
     Route: 048
     Dates: start: 20090213, end: 20090513
  2. LASIX [Concomitant]
     Dates: start: 20090203
  3. FOSAMAX [Concomitant]
     Dates: start: 20090203
  4. BACTRIM [Concomitant]
     Dates: start: 20090203
  5. CYTOXAN [Concomitant]
     Dates: start: 20090203
  6. ATIVAN [Concomitant]
     Dates: start: 20090203
  7. PREDNISONE [Concomitant]
     Dates: start: 20090203
  8. PRILOSEC [Concomitant]
     Dates: start: 20090203
  9. ASPIRIN [Concomitant]
     Dates: start: 20090203

REACTIONS (1)
  - PULMONARY OEDEMA [None]
